FAERS Safety Report 8351652-5 (Version None)
Quarter: 2012Q2

REPORT INFORMATION
  Report Type: 
  Country: None (occurrence: None)
  Receive Date: 20120511
  Receipt Date: 20120501
  Transmission Date: 20120825
  Serious: No
  Sender: FDA-Public Use
  Company Number: US-BIOGENIDEC-2012BI015436

PATIENT
  Sex: Male

DRUGS (4)
  1. AVONEX [Concomitant]
     Indication: MULTIPLE SCLEROSIS
     Route: 030
     Dates: start: 20000901
  2. AVONEX [Concomitant]
     Route: 030
  3. TYSABRI [Suspect]
     Route: 042
     Dates: start: 20101230
  4. TYSABRI [Suspect]
     Indication: MULTIPLE SCLEROSIS
     Route: 042

REACTIONS (3)
  - MULTIPLE SCLEROSIS RELAPSE [None]
  - MENTAL DISORDER [None]
  - CATHETER SITE PAIN [None]
